FAERS Safety Report 5284964-2 (Version None)
Quarter: 2007Q1

REPORT INFORMATION
  Report Type: 
  Country: None (occurrence: None)
  Receive Date: 20061229
  Receipt Date: 20060913
  Transmission Date: 20070707
  Serious: Yes (Other)
  Sender: FDA-Public Use
  Company Number: 2006UW17915

PATIENT
  Age: 68 Year
  Sex: Male

DRUGS (4)
  1. CRESTOR [Suspect]
     Dosage: 10 MG QOD  PO
     Route: 048
  2. GLUCOPHAGE [Concomitant]
  3. GLYBURIDE [Concomitant]
  4. CALCIUM CHANNEL BLOCKER [Concomitant]

REACTIONS (1)
  - TREMOR [None]
